FAERS Safety Report 9477407 (Version 2)
Quarter: 2013Q4

REPORT INFORMATION
  Report Type: Spontaneous
  Country: IT (occurrence: IT)
  Receive Date: 20130826
  Receipt Date: 20131231
  Transmission Date: 20140711
  Serious: Yes (Other)
  Sender: FDA-Public Use
  Company Number: IT-B.I. PHARMACEUTICALS,INC./RIDGEFIELD-2013-IT-00456IT

PATIENT
  Age: 84 Year
  Sex: Female

DRUGS (4)
  1. MIRAPEXIN [Suspect]
     Indication: PARKINSON^S DISEASE
     Dosage: 2.1 MG
     Route: 048
     Dates: start: 20120424, end: 20130423
  2. MIRTAZAPINE [Suspect]
     Indication: DEPRESSION
     Dosage: 1 POSOLOGIC UNIT DAILY
     Route: 048
     Dates: start: 20120424, end: 20130423
  3. ALPRAZOLAM [Suspect]
     Indication: DEPRESSION
     Dosage: 1 POSOLOGIC UNIT DAILY
     Route: 048
     Dates: start: 20120424, end: 20130423
  4. SINEMET [Suspect]
     Indication: PARKINSON^S DISEASE
     Dosage: 1 POSOLOGIC UNIT DAILY
     Route: 048
     Dates: start: 20120424, end: 20130423

REACTIONS (1)
  - Sopor [Not Recovered/Not Resolved]
